FAERS Safety Report 23617068 (Version 1)
Quarter: 2024Q1

REPORT INFORMATION
  Report Type: Spontaneous
  Country: IT (occurrence: IT)
  Receive Date: 20240311
  Receipt Date: 20240311
  Transmission Date: 20240409
  Serious: Yes (Hospitalization)
  Sender: FDA-Public Use
  Company Number: None

PATIENT
  Age: 64 Year
  Sex: Male

DRUGS (3)
  1. KETOROLAC [Suspect]
     Active Substance: KETOROLAC TROMETHAMINE
     Indication: Abdominal pain
     Dosage: 30 MG
     Route: 050
     Dates: start: 20240207, end: 20240207
  2. ACETAMINOPHEN [Suspect]
     Active Substance: ACETAMINOPHEN
     Indication: Abdominal pain
     Dosage: 2 G IN 24 HOURS (1 G ORALLY AT HOME, 1 G PARENTERAL IN THE ED)
     Route: 050
     Dates: start: 20240207, end: 20240207
  3. ACETAMINOPHEN [Suspect]
     Active Substance: ACETAMINOPHEN
     Indication: Abdominal pain
     Route: 050
     Dates: start: 20240207, end: 20240207

REACTIONS (2)
  - Acute kidney injury [Recovering/Resolving]
  - Pancreatic enzyme abnormality [Recovering/Resolving]

NARRATIVE: CASE EVENT DATE: 20240207
